FAERS Safety Report 4556745-6 (Version None)
Quarter: 2005Q1

REPORT INFORMATION
  Report Type: 
  Country: None (occurrence: None)
  Receive Date: 20050111
  Receipt Date: 20041021
  Transmission Date: 20050727
  Serious: Yes (Hospitalization)
  Sender: FDA-Public Use
  Company Number: 2004S1000237

PATIENT
  Age: 54 Year
  Sex: Male

DRUGS (8)
  1. CUBICIN [Suspect]
     Indication: IMPLANT SITE INFECTION
     Dosage: 360 MG;Q24H;IV
     Route: 042
     Dates: start: 20041015
  2. WARFARIN SODIUM [Concomitant]
  3. TACROLIMUS [Concomitant]
  4. BACTRIM [Concomitant]
  5. FLUCONAZOLE [Concomitant]
  6. IMIPENEM [Concomitant]
  7. LEVOFLOXACIN [Concomitant]
  8. METRONIDAZOLE [Concomitant]

REACTIONS (1)
  - INTERNATIONAL NORMALISED RATIO INCREASED [None]
